FAERS Safety Report 18491493 (Version 1)
Quarter: 2020Q4

REPORT INFORMATION
  Report Type: Spontaneous
  Country: US (occurrence: US)
  Receive Date: 20201111
  Receipt Date: 20201111
  Transmission Date: 20210114
  Serious: No
  Sender: FDA-Public Use
  Company Number: US-TEVA-2020-US-1847521

PATIENT
  Sex: Female

DRUGS (4)
  1. LENVIMA [Suspect]
     Active Substance: LENVATINIB
     Dosage: 24 MILLIGRAM DAILY;
     Route: 065
     Dates: start: 20201003, end: 20201014
  2. LISINOPRIL. [Suspect]
     Active Substance: LISINOPRIL
     Indication: HYPERTENSION
     Route: 065
     Dates: start: 20201014
  3. LISINOPRIL. [Suspect]
     Active Substance: LISINOPRIL
     Dosage: DOSE DECREASED
     Route: 065
     Dates: start: 2020
  4. LENVIMA [Suspect]
     Active Substance: LENVATINIB
     Dosage: 10 MILLIGRAM DAILY;
     Route: 065
     Dates: start: 20201020

REACTIONS (2)
  - Headache [Recovering/Resolving]
  - Feeling hot [Unknown]

NARRATIVE: CASE EVENT DATE: 202010
